FAERS Safety Report 11595705 (Version 3)
Quarter: 2015Q4

REPORT INFORMATION
  Report Type: Spontaneous
  Country: US (occurrence: US)
  Receive Date: 20151006
  Receipt Date: 20151015
  Transmission Date: 20160304
  Serious: Yes (Hospitalization)
  Sender: FDA-Public Use
  Company Number: US-DRREDDYS-USA/USA/15/0053043

PATIENT
  Sex: Male
  Weight: 88 kg

DRUGS (4)
  1. CIPROFLOXACIN. [Suspect]
     Active Substance: CIPROFLOXACIN
     Indication: OSTEOMYELITIS
     Route: 065
     Dates: start: 20150910
  2. AZTREONAM. [Concomitant]
     Active Substance: AZTREONAM
     Indication: OSTEOMYELITIS
     Route: 065
  3. DOXYCYCLINE. [Suspect]
     Active Substance: DOXYCYCLINE
     Indication: OSTEOMYELITIS
     Route: 065
  4. ZYVOX [Suspect]
     Active Substance: LINEZOLID
     Indication: OSTEOMYELITIS
     Route: 042
     Dates: end: 20151006

REACTIONS (3)
  - Nausea [Recovered/Resolved]
  - Fatigue [Recovered/Resolved]
  - Osteomyelitis [Recovering/Resolving]
